FAERS Safety Report 6316777-4 (Version None)
Quarter: 2009Q3

REPORT INFORMATION
  Report Type: 
  Country: None (occurrence: None)
  Receive Date: 20090820
  Receipt Date: 20090813
  Transmission Date: 20100115
  Serious: Yes (Other)
  Sender: FDA-Public Use
  Company Number: US-ELI_LILLY_AND_COMPANY-US200908003056

PATIENT
  Sex: Male

DRUGS (4)
  1. CIALIS [Suspect]
     Dosage: 2.5 MG, UNKNOWN
     Route: 065
     Dates: start: 20081001
  2. CIALIS [Interacting]
     Dosage: 20 MG, UNKNOWN
     Route: 065
  3. TAMSULOSIN [Interacting]
     Indication: PROSTATOMEGALY
  4. LISINOPRIL [Concomitant]

REACTIONS (6)
  - CARDIOMYOPATHY [None]
  - DRUG INTERACTION [None]
  - HEART RATE IRREGULAR [None]
  - HYPERVENTILATION [None]
  - SLEEP APNOEA SYNDROME [None]
  - SLEEP DISORDER [None]
